FAERS Safety Report 9357910 (Version 1)
Quarter: 2013Q2

REPORT INFORMATION
  Report Type: Spontaneous
  Country: US (occurrence: None)
  Receive Date: 20130619
  Receipt Date: 20130619
  Transmission Date: 20140414
  Serious: Yes (Other)
  Sender: FDA-Public Use
  Company Number: None

PATIENT
  Age: 49 Year
  Sex: Male

DRUGS (1)
  1. ORAJEL [Suspect]
     Indication: TOOTHACHE
     Dates: start: 2012, end: 2013

REACTIONS (4)
  - Drug ineffective [None]
  - Application site pain [None]
  - Stress [None]
  - Product tampering [None]
